FAERS Safety Report 21299125 (Version 1)
Quarter: 2022Q3

REPORT INFORMATION
  Report Type: Spontaneous
  Country: CA (occurrence: CA)
  Receive Date: 20220906
  Receipt Date: 20220906
  Transmission Date: 20221027
  Serious: Yes (Hospitalization, Other)
  Sender: FDA-Public Use
  Company Number: CA-PFIZER INC-202201117829

PATIENT
  Age: 14 Year
  Weight: 47.4 kg

DRUGS (3)
  1. METHOTREXATE SODIUM [Suspect]
     Active Substance: METHOTREXATE SODIUM
     Dosage: 1 DF, EVERY FRIDAY
     Route: 065
  2. PREDNISONE [Concomitant]
     Active Substance: PREDNISONE
     Dosage: UNK - PREDNISONE TAPER
  3. FOLIC ACID [Concomitant]
     Active Substance: FOLIC ACID
     Dosage: UNK

REACTIONS (1)
  - Colitis ulcerative [Unknown]

NARRATIVE: CASE EVENT DATE: 20220812
